FAERS Safety Report 24769910 (Version 1)
Quarter: 2024Q4

REPORT INFORMATION
  Report Type: Report from Study
  Country: US (occurrence: US)
  Receive Date: 20241224
  Receipt Date: 20241224
  Transmission Date: 20250114
  Serious: Yes (Other)
  Sender: ROCHE
  Company Number: US-ROCHE-10000160333

PATIENT
  Age: 62 Year
  Sex: Male
  Weight: 102.97 kg

DRUGS (10)
  1. CELLCEPT [Suspect]
     Active Substance: MYCOPHENOLATE MOFETIL
     Indication: Product used for unknown indication
     Route: 048
  2. DAPSONE [Suspect]
     Active Substance: DAPSONE
     Indication: Vasculitis
     Route: 048
  3. WIXELA INHUB [Concomitant]
     Active Substance: FLUTICASONE PROPIONATE\SALMETEROL XINAFOATE
     Dosage: 250 MCG/50 MCG INHUB
  4. CYCLOBENZAPRINE HYDROCHLORIDE [Concomitant]
     Active Substance: CYCLOBENZAPRINE HYDROCHLORIDE
     Dosage: 1 TABLET AT BEDTIME AS NEEDED
     Route: 048
  5. ALBUTEROL SULFATE [Concomitant]
     Active Substance: ALBUTEROL SULFATE
     Dosage: MCG/ACT AEROSOL SOLUTION 1 PUFF AS NEEDED INHALATION EVERY 4 HRS
  6. VITAMIN D3 [Concomitant]
     Active Substance: CHOLECALCIFEROL
     Route: 048
  7. TAMSULOSIN HYDROCHLORIDE [Concomitant]
     Active Substance: TAMSULOSIN HYDROCHLORIDE
     Route: 048
  8. LEVOTHYROXINE SODIUM [Concomitant]
     Active Substance: LEVOTHYROXINE SODIUM
     Dosage: 1 TABLET IN THE MORNING ON AN EMPTY STOMACH
     Route: 048
  9. COLCRYS [Concomitant]
     Active Substance: COLCHICINE
  10. PREDNISONE [Concomitant]
     Active Substance: PREDNISONE
     Route: 048

REACTIONS (3)
  - Cutaneous vasculitis [Unknown]
  - Osteoporosis [Unknown]
  - Renal injury [Recovered/Resolved]
